FAERS Safety Report 7088972-0 (Version None)
Quarter: 2010Q4

REPORT INFORMATION
  Report Type: 
  Country: None (occurrence: None)
  Receive Date: 20101108
  Receipt Date: 20101103
  Transmission Date: 20110411
  Serious: Yes (Other)
  Sender: FDA-Public Use
  Company Number: GR-PFIZER INC-2010141150

PATIENT
  Age: 57 Year
  Sex: Female

DRUGS (1)
  1. CABERGOLINE [Suspect]
     Indication: HYPERCORTICOIDISM

REACTIONS (4)
  - DRUG INEFFECTIVE [None]
  - HYPERCORTICOIDISM [None]
  - OPTIC NEUROPATHY [None]
  - RADIATION INJURY [None]
